FAERS Safety Report 24526027 (Version 1)
Quarter: 2024Q4

REPORT INFORMATION
  Report Type: Spontaneous
  Country: CN (occurrence: CN)
  Receive Date: 20241021
  Receipt Date: 20241021
  Transmission Date: 20250114
  Serious: Yes (Life-Threatening, Other)
  Sender: ASTELLAS
  Company Number: CN-ASTELLAS-2024-AER-013214

PATIENT
  Age: 20 Year
  Sex: Male
  Weight: 55 kg

DRUGS (4)
  1. PROGRAF [Suspect]
     Active Substance: TACROLIMUS
     Indication: Allogenic stem cell transplantation
     Route: 065
     Dates: start: 20240913, end: 20241002
  2. CYCLOSPORINE [Concomitant]
     Active Substance: CYCLOSPORINE
     Indication: Prophylaxis against transplant rejection
     Route: 042
     Dates: start: 20240910, end: 20240913
  3. CYCLOSPORINE [Concomitant]
     Active Substance: CYCLOSPORINE
     Indication: Prophylaxis against transplant rejection
     Route: 048
     Dates: start: 20241003, end: 20241005
  4. AMIKACIN SULFATE [Concomitant]
     Active Substance: AMIKACIN SULFATE
     Indication: Oral infection
     Route: 042
     Dates: start: 20240909, end: 20240923

REACTIONS (4)
  - Acute kidney injury [Not Recovered/Not Resolved]
  - Pseudomonas infection [Unknown]
  - Human herpesvirus 7 infection [Unknown]
  - Off label use [Unknown]

NARRATIVE: CASE EVENT DATE: 20240901
